FAERS Safety Report 15373595 (Version 12)
Quarter: 2020Q2

REPORT INFORMATION
  Report Type: Spontaneous
  Country: US (occurrence: US)
  Receive Date: 20180912
  Receipt Date: 20200427
  Transmission Date: 20200713
  Serious: No
  Sender: FDA-Public Use
  Company Number: US-PFIZER INC-2018367082

PATIENT
  Age: 59 Year
  Sex: Female

DRUGS (5)
  1. LYRICA [Suspect]
     Active Substance: PREGABALIN
     Dosage: 225 MG, 2X/DAY
     Route: 048
     Dates: start: 20190919
  2. LYRICA [Suspect]
     Active Substance: PREGABALIN
     Indication: CERVICAL RADICULOPATHY
     Dosage: 225 MG, 2X/DAY
     Route: 048
     Dates: start: 20180907
  3. LYRICA [Suspect]
     Active Substance: PREGABALIN
     Indication: NECK PAIN
     Dosage: 225 MG, 2X/DAY
     Route: 048
     Dates: start: 20190305, end: 2019
  4. LYRICA [Suspect]
     Active Substance: PREGABALIN
     Dosage: 225 MG, 2X/DAY
     Route: 048
     Dates: start: 20190703, end: 2019
  5. LYRICA [Suspect]
     Active Substance: PREGABALIN
     Indication: FIBROMYALGIA
     Dosage: 225 MG, 2X/DAY
     Route: 048
     Dates: start: 20190313, end: 2019

REACTIONS (2)
  - Pain [Unknown]
  - Burning sensation [Unknown]

NARRATIVE: CASE EVENT DATE: 2018
